FAERS Safety Report 6551976-8 (Version None)
Quarter: 2010Q1

REPORT INFORMATION
  Report Type: 
  Country: None (occurrence: None)
  Receive Date: 20100120
  Receipt Date: 20100104
  Transmission Date: 20100710
  Serious: Yes (Hospitalization, Other)
  Sender: FDA-Public Use
  Company Number: 2009-5106

PATIENT
  Age: 80 Year
  Sex: Female

DRUGS (2)
  1. SOMATULINE DEPOT [Suspect]
     Indication: ACROMEGALY
     Dosage: (120 MG), SUBCUTANEOUS
     Route: 058
     Dates: start: 20070427
  2. SAMOVERT (PEGVISOMANT) [Concomitant]

REACTIONS (1)
  - DYSPNOEA [None]
